FAERS Safety Report 4672827-2 (Version None)
Quarter: 2005Q2

REPORT INFORMATION
  Report Type: 
  Country: None (occurrence: None)
  Receive Date: 20050524
  Receipt Date: 20050516
  Transmission Date: 20051028
  Serious: Yes (Disabling)
  Sender: FDA-Public Use
  Company Number: PHBS2005IT07164

PATIENT
  Age: 55 Year
  Sex: Female

DRUGS (2)
  1. AROMASIN [Concomitant]
     Indication: BREAST CANCER
     Dosage: 25 MG/D
     Route: 048
  2. ZOMETA [Suspect]
     Indication: METASTASES TO BONE
     Dosage: 4 MG, QMO
     Route: 042
     Dates: start: 20030131, end: 20041105

REACTIONS (2)
  - LOCALISED INFECTION [None]
  - TOOTH EXTRACTION [None]
